FAERS Safety Report 18689496 (Version 1)
Quarter: 2020Q4

REPORT INFORMATION
  Report Type: Report from Study
  Country: US (occurrence: US)
  Receive Date: 20201231
  Receipt Date: 20201231
  Transmission Date: 20210114
  Serious: Yes (Death, Hospitalization)
  Sender: FDA-Public Use
  Company Number: US-SECURA BIO, INC.-2020US008797

PATIENT

DRUGS (4)
  1. OXYCODONE [Concomitant]
     Active Substance: OXYCODONE
     Indication: PRODUCT USED FOR UNKNOWN INDICATION
     Dosage: UNK
     Dates: start: 20201221
  2. IPI-145 [Suspect]
     Active Substance: DUVELISIB
     Indication: T-CELL LYMPHOMA
     Dosage: 75 MG, BID
     Route: 048
     Dates: start: 20201112, end: 20201121
  3. ZOSYN [Concomitant]
     Active Substance: PIPERACILLIN SODIUM\TAZOBACTAM SODIUM
     Indication: PRODUCT USED FOR UNKNOWN INDICATION
     Dosage: INTRAVENOUS, Q6HR
     Route: 042
     Dates: start: 20201221, end: 20201222
  4. LEVAQUIN [Concomitant]
     Active Substance: LEVOFLOXACIN
     Indication: PRODUCT USED FOR UNKNOWN INDICATION
     Dosage: 500 MG, DAILY
     Route: 048
     Dates: start: 20201222

REACTIONS (3)
  - Candida infection [Recovered/Resolved with Sequelae]
  - Disease progression [Fatal]
  - Abdominal pain [Recovered/Resolved with Sequelae]

NARRATIVE: CASE EVENT DATE: 20201221
